FAERS Safety Report 5507662-6 (Version None)
Quarter: 2007Q4

REPORT INFORMATION
  Report Type: 
  Country: None (occurrence: None)
  Receive Date: 20071105
  Receipt Date: 20071105
  Transmission Date: 20080405
  Serious: Yes (Other)
  Sender: FDA-Public Use
  Company Number: None

PATIENT
  Age: 11 Year
  Sex: Female
  Weight: 38.1022 kg

DRUGS (3)
  1. ZOLOFT [Suspect]
     Indication: DEPRESSION
     Dosage: 150MG  ONCE A DAY   PO
     Route: 048
     Dates: start: 20061215, end: 20071102
  2. ZOLOFT [Suspect]
     Indication: POST-TRAUMATIC STRESS DISORDER
     Dosage: 150MG  ONCE A DAY   PO
     Route: 048
     Dates: start: 20061215, end: 20071102
  3. SEROQUEL [Suspect]
     Indication: SLEEP TERROR
     Dosage: 100MG ONCE A DAY  PO
     Route: 048
     Dates: start: 20060715, end: 20071102

REACTIONS (8)
  - ABNORMAL BEHAVIOUR [None]
  - AGITATION [None]
  - ANGER [None]
  - CRYING [None]
  - FEELING ABNORMAL [None]
  - HOMICIDAL IDEATION [None]
  - PHYSICAL ABUSE [None]
  - PHYSICAL ASSAULT [None]
